FAERS Safety Report 7329375-0 (Version None)
Quarter: 2011Q1

REPORT INFORMATION
  Report Type: 
  Country: None (occurrence: None)
  Receive Date: 20110303
  Receipt Date: 20110222
  Transmission Date: 20110831
  Serious: Yes (Other)
  Sender: FDA-Public Use
  Company Number: US-ASTRAZENECA-2010SE11203

PATIENT
  Age: 53 Year
  Sex: Female
  Weight: 58.1 kg

DRUGS (7)
  1. CRESTOR [Suspect]
     Route: 048
     Dates: start: 20100207
  2. XANAX [Concomitant]
  3. LISINOPRIL [Concomitant]
  4. PROZAC [Concomitant]
  5. METOPROLOL TARTRATE [Concomitant]
  6. PLAVIX [Concomitant]
  7. ASPIRIN [Concomitant]

REACTIONS (5)
  - FEELING ABNORMAL [None]
  - MYALGIA [None]
  - SUICIDAL IDEATION [None]
  - COUGH [None]
  - TREMOR [None]
